FAERS Safety Report 11391032 (Version 2)
Quarter: 2015Q3

REPORT INFORMATION
  Report Type: Spontaneous
  Country: US (occurrence: US)
  Receive Date: 20150818
  Receipt Date: 20150908
  Transmission Date: 20151125
  Serious: Yes (Hospitalization)
  Sender: FDA-Public Use
  Company Number: US-ROCHE-1621527

PATIENT
  Sex: Female
  Weight: 63.56 kg

DRUGS (1)
  1. ESBRIET [Suspect]
     Active Substance: PIRFENIDONE
     Indication: IDIOPATHIC PULMONARY FIBROSIS
     Dosage: 3 CAPS PO TID
     Route: 048
     Dates: start: 20150625

REACTIONS (3)
  - Dyspnoea [Unknown]
  - Cough [Unknown]
  - Staphylococcal infection [Unknown]
